FAERS Safety Report 9877927 (Version 1)
Quarter: 2014Q1

REPORT INFORMATION
  Report Type: Report from Study
  Country: BR (occurrence: BR)
  Receive Date: 20140206
  Receipt Date: 20140206
  Transmission Date: 20141002
  Serious: Yes (Death)
  Sender: FDA-Public Use
  Company Number: PHHY2014BR014293

PATIENT
  Age: 84 Year
  Sex: Female

DRUGS (2)
  1. EXELON PATCH [Suspect]
     Indication: DEMENTIA ALZHEIMER^S TYPE
     Dosage: 5 CM2 (4.6 MG/24 HOURS) ONCE A DAY
     Route: 062
     Dates: start: 20130801
  2. EXELON PATCH [Suspect]
     Indication: DEMENTIA
     Dosage: 10 CM2 (9.5 MG/24 HOURS)
     Route: 062

REACTIONS (2)
  - Dementia Alzheimer^s type [Fatal]
  - Dementia [Fatal]
